FAERS Safety Report 9191694 (Version 1)
Quarter: 2013Q1

REPORT INFORMATION
  Report Type: Spontaneous
  Country: US (occurrence: US)
  Receive Date: 20130326
  Receipt Date: 20130326
  Transmission Date: 20140127
  Serious: No
  Sender: FDA-Public Use
  Company Number: US-009507513-1303USA007022

PATIENT
  Sex: Female

DRUGS (3)
  1. PEGINTRON [Suspect]
     Indication: HEPATITIS C VIRUS TEST POSITIVE
     Dosage: UNK
     Dates: start: 20121206
  2. REBETOL [Suspect]
     Dosage: UNK
     Route: 048
     Dates: start: 20121206
  3. VICTRELIS [Suspect]
     Indication: HEPATITIS C VIRUS TEST POSITIVE
     Dosage: UNK
     Route: 048
     Dates: start: 20130103

REACTIONS (26)
  - Musculoskeletal disorder [Unknown]
  - Heart rate increased [Unknown]
  - Tachycardia [Unknown]
  - Dyspnoea [Unknown]
  - White blood cell count decreased [Unknown]
  - Leukopenia [Unknown]
  - Anaemia [Unknown]
  - Haemoglobin decreased [Unknown]
  - Chills [Unknown]
  - Weight decreased [Unknown]
  - Fatigue [Unknown]
  - Nausea [Unknown]
  - Dysgeusia [Unknown]
  - Decreased appetite [Unknown]
  - Mood swings [Unknown]
  - Oral pain [Unknown]
  - Gastrointestinal disorder [Unknown]
  - Dry skin [Unknown]
  - Dysphonia [Unknown]
  - Alopecia [Unknown]
  - Oropharyngeal pain [Unknown]
  - Tongue discolouration [Unknown]
  - Rash [Unknown]
  - Skin disorder [Unknown]
  - Memory impairment [Unknown]
  - Insomnia [Recovering/Resolving]
